FAERS Safety Report 5699186-0 (Version None)
Quarter: 2008Q2

REPORT INFORMATION
  Report Type: 
  Country: None (occurrence: None)
  Receive Date: 20080407
  Receipt Date: 20080407
  Transmission Date: 20081010
  Serious: Yes (Life-Threatening, Hospitalization, Other)
  Sender: FDA-Public Use
  Company Number: None

PATIENT
  Age: 45 Year
  Sex: Female
  Weight: 88.4514 kg

DRUGS (1)
  1. SINGULAIR [Suspect]
     Indication: IMMUNE SYSTEM DISORDER
     Dosage: 1 PILL ONCE PER DAY IF NEEDED INCREASE TO 2 PILLS PER DAY
     Dates: start: 20050220, end: 20080325

REACTIONS (7)
  - ANXIETY [None]
  - DEPRESSION [None]
  - LACERATION [None]
  - NIGHTMARE [None]
  - SCAR [None]
  - SLEEP TERROR [None]
  - SUICIDE ATTEMPT [None]
